FAERS Safety Report 19484072 (Version 1)
Quarter: 2021Q3

REPORT INFORMATION
  Report Type: Report from Study
  Country: None (occurrence: KW)
  Receive Date: 20210701
  Receipt Date: 20210701
  Transmission Date: 20211014
  Serious: Yes (Other)
  Sender: FDA-Public Use
  Company Number: KW-ABBVIE-21K-091-3964068-00

PATIENT
  Age: 64 Year
  Sex: Female
  Weight: 94 kg

DRUGS (14)
  1. NEUPRO [Concomitant]
     Active Substance: ROTIGOTINE
     Indication: PARKINSON^S DISEASE
     Dosage: NEUPRO PATCH,ONCE A DAY
  2. CREDANIL [Concomitant]
     Indication: PRODUCT USED FOR UNKNOWN INDICATION
     Dosage: 10/100, ONCE A DAY
     Route: 048
  3. CRESTOR [Concomitant]
     Active Substance: ROSUVASTATIN CALCIUM
     Indication: PRODUCT USED FOR UNKNOWN INDICATION
     Dosage: ONCE A DAY
     Route: 048
  4. MOVICOL [Concomitant]
     Active Substance: POLYETHYLENE GLYCOL 3350\POTASSIUM CHLORIDE\SODIUM BICARBONATE\SODIUM CHLORIDE
     Indication: PRODUCT USED FOR UNKNOWN INDICATION
     Dosage: DAILY AT NIGHT WITH HALF CUP OF WATER
  5. NORMACOL [Concomitant]
     Active Substance: HERBALS\KARAYA GUM
     Indication: LAXATIVE SUPPORTIVE CARE
     Dosage: ONCE A DAY
  6. CO?DIOVAN [Concomitant]
     Active Substance: HYDROCHLOROTHIAZIDE\VALSARTAN
     Indication: PRODUCT USED FOR UNKNOWN INDICATION
     Dosage: 160/12.5, ONCE A DAY
     Route: 048
  7. NOVORAPID [Concomitant]
     Active Substance: INSULIN ASPART
     Indication: DIABETES MELLITUS
     Dosage: PEN 3 TIMES PER DAY
     Route: 058
  8. EZETIMIBE. [Concomitant]
     Active Substance: EZETIMIBE
     Indication: HYPERTENSION
     Route: 048
  9. DUSPATALIN [Concomitant]
     Active Substance: MEBEVERINE
     Indication: HYPERTENSION
     Dosage: ONCE A DAY
     Route: 048
  10. LANTUS [Concomitant]
     Active Substance: INSULIN GLARGINE
     Indication: DIABETES MELLITUS
     Dosage: PEN 2 TIMES PER DAY
     Route: 058
  11. DUODOPA [Suspect]
     Active Substance: CARBIDOPA\LEVODOPA
  12. JANUVIA [Concomitant]
     Active Substance: SITAGLIPTIN PHOSPHATE
     Indication: PRODUCT USED FOR UNKNOWN INDICATION
     Dosage: ONCE A DAY
     Route: 048
  13. DUODOPA [Suspect]
     Active Substance: CARBIDOPA\LEVODOPA
     Indication: PARKINSON^S DISEASE
     Dosage: MORNING DOSE 15ML, CONTINIOUS RATE 3.5ML/HR, EXTRA DOSE 2ML,CONTINUOUS OVER 16 HOURS
     Route: 050
     Dates: start: 20171005
  14. LEVACIN [Concomitant]
     Indication: PARKINSON^S DISEASE
     Dosage: 100/25MG, 3 TIMES PER DAY
     Route: 048

REACTIONS (2)
  - Constipation [Recovered/Resolved]
  - Abdominal hernia [Recovering/Resolving]

NARRATIVE: CASE EVENT DATE: 202106
